FAERS Safety Report 14307765 (Version 8)
Quarter: 2018Q2

REPORT INFORMATION
  Report Type: Report from Study
  Country: US (occurrence: US)
  Receive Date: 20171220
  Receipt Date: 20180413
  Transmission Date: 20180711
  Serious: Yes (Hospitalization, Other)
  Sender: FDA-Public Use
  Company Number: US-GILEAD-2017-0311486

PATIENT
  Age: 67 Year
  Sex: Male
  Weight: 71.57 kg

DRUGS (21)
  1. ADCIRCA [Concomitant]
     Active Substance: TADALAFIL
     Indication: PULMONARY ARTERIAL HYPERTENSION
  2. INSPRA [Concomitant]
     Active Substance: EPLERENONE
     Indication: PULMONARY HYPERTENSION
  3. BACTROBAN [Concomitant]
     Active Substance: MUPIROCIN\MUPIROCIN CALCIUM
  4. NEXIUM [Concomitant]
     Active Substance: ESOMEPRAZOLE MAGNESIUM
  5. NORCO [Concomitant]
     Active Substance: ACETAMINOPHEN\HYDROCODONE BITARTRATE
  6. SALINE                             /00075401/ [Concomitant]
     Active Substance: SODIUM CHLORIDE
  7. UPTRAVI [Suspect]
     Active Substance: SELEXIPAG
     Indication: PRODUCT USED FOR UNKNOWN INDICATION
     Dosage: 200 UG, BID
     Route: 048
  8. UPTRAVI [Suspect]
     Active Substance: SELEXIPAG
     Dosage: 200 UG, BID
     Route: 048
     Dates: start: 20171214
  9. PLAVIX [Concomitant]
     Active Substance: CLOPIDOGREL BISULFATE
  10. AMBRISENTAN [Suspect]
     Active Substance: AMBRISENTAN
     Indication: PULMONARY ARTERIAL HYPERTENSION
     Dosage: 10 MG, QD
     Route: 048
     Dates: start: 20161004
  11. LIPITOR [Concomitant]
     Active Substance: ATORVASTATIN CALCIUM
  12. TEMOVATE [Concomitant]
     Active Substance: CLOBETASOL PROPIONATE
  13. SODIUM CHLORIDE. [Concomitant]
     Active Substance: SODIUM CHLORIDE
  14. MAGNESIUM [Concomitant]
     Active Substance: MAGNESIUM
  15. OXYGEN. [Concomitant]
     Active Substance: OXYGEN
  16. NEURONTIN [Concomitant]
     Active Substance: GABAPENTIN
  17. VALTREX [Concomitant]
     Active Substance: VALACYCLOVIR HYDROCHLORIDE
  18. UPTRAVI [Suspect]
     Active Substance: SELEXIPAG
     Dosage: 1 DF, QD
     Route: 048
  19. VOLTAREN [Concomitant]
     Active Substance: DICLOFENAC SODIUM
  20. ASPIRIN 81 [Concomitant]
     Active Substance: ASPIRIN
  21. KLONOPIN [Concomitant]
     Active Substance: CLONAZEPAM
     Indication: ANXIETY

REACTIONS (9)
  - Pulmonary oedema [Recovered/Resolved]
  - Oedema peripheral [Not Recovered/Not Resolved]
  - Non-cardiac chest pain [Unknown]
  - Pulmonary arterial hypertension [Not Recovered/Not Resolved]
  - Myalgia [Unknown]
  - Cardiac failure congestive [Not Recovered/Not Resolved]
  - Device intolerance [Recovered/Resolved]
  - Weight increased [Recovered/Resolved]
  - Cardiac failure congestive [Recovered/Resolved]

NARRATIVE: CASE EVENT DATE: 201712
